FAERS Safety Report 17534581 (Version 8)
Quarter: 2021Q3

REPORT INFORMATION
  Report Type: Report from Study
  Country: AT (occurrence: AT)
  Receive Date: 20200312
  Receipt Date: 20210928
  Transmission Date: 20211014
  Serious: Yes (Hospitalization, Other)
  Sender: FDA-Public Use
  Company Number: AT-MYLANLABS-2020M1026176

PATIENT
  Age: 54 Year
  Sex: Female
  Weight: 75 kg

DRUGS (51)
  1. TRASTUZUMAB. [Suspect]
     Active Substance: TRASTUZUMAB
     Dosage: 378 MILLIGRAM, Q3W
     Route: 042
     Dates: start: 20181214, end: 20190109
  2. NAVELBINE [Suspect]
     Active Substance: VINORELBINE TARTRATE
     Dosage: UNK
  3. OCTENISEPT                         /00972101/ [Concomitant]
     Indication: ONYCHOLYSIS
     Dosage: UNK
     Dates: start: 20180725
  4. TRASTUZUMAB. [Suspect]
     Active Substance: TRASTUZUMAB
     Indication: HER2 POSITIVE BREAST CANCER
     Dosage: 600 MILLIGRAM, Q3W (MOST RECENT DOSE PRIOR TO THE EVENT: 26/JUN/2018)
     Route: 042
     Dates: start: 20180328, end: 20180328
  5. TRASTUZUMAB. [Suspect]
     Active Substance: TRASTUZUMAB
     Dosage: 378 MILLIGRAM, Q3W (MOST RECENT DOSE WAS RECEIVED ON 09/JAN/2019 )
     Route: 042
     Dates: start: 20181123
  6. TRASTUZUMAB. [Suspect]
     Active Substance: TRASTUZUMAB
     Dosage: 600 MILLIGRAM, Q3W
     Route: 042
     Dates: start: 20191011, end: 20191011
  7. PERTUZUMAB. [Suspect]
     Active Substance: PERTUZUMAB
     Dosage: UNK
  8. ABRAXANE [Suspect]
     Active Substance: PACLITAXEL
     Dosage: 172.67 MILLIGRAM, QW
     Route: 042
     Dates: start: 20190102, end: 20190102
  9. BEPANTHENE [Concomitant]
     Active Substance: DEXPANTHENOL
     Indication: ONYCHOLYSIS
     Dosage: UNK
     Dates: start: 20180725
  10. ABRAXANE [Suspect]
     Active Substance: PACLITAXEL
     Indication: HER2 POSITIVE BREAST CANCER
     Dosage: 147.76 MILLIGRAM, QW
     Route: 042
     Dates: start: 20180328, end: 20180409
  11. ABRAXANE [Suspect]
     Active Substance: PACLITAXEL
     Dosage: 172.67 MILLIGRAM, QW
     Route: 042
     Dates: start: 20180515, end: 20180515
  12. ABRAXANE [Suspect]
     Active Substance: PACLITAXEL
     Dosage: 171.51 MILLIGRAM, QW
     Route: 042
     Dates: start: 20181207, end: 20181221
  13. TRASTUZUMAB EMTANSINE [Suspect]
     Active Substance: ADO-TRASTUZUMAB EMTANSINE
     Dosage: UNK
  14. DEXAMETHASONE. [Concomitant]
     Active Substance: DEXAMETHASONE
     Indication: PRODUCT USED FOR UNKNOWN INDICATION
     Dosage: UNK
     Dates: start: 20190628, end: 20190830
  15. NOVALGINA [Concomitant]
     Active Substance: METAMIZOLE SODIUM
     Indication: PRODUCT USED FOR UNKNOWN INDICATION
     Dosage: UNK
     Route: 065
     Dates: start: 20200224, end: 20200410
  16. PERTUZUMAB. [Suspect]
     Active Substance: PERTUZUMAB
     Dosage: 420 MILLIGRAM, Q3W
     Route: 042
     Dates: start: 20180423, end: 20180423
  17. PERTUZUMAB. [Suspect]
     Active Substance: PERTUZUMAB
     Dosage: 420 MILLIGRAM, Q3W
     Route: 042
     Dates: start: 20181214, end: 20190109
  18. ABRAXANE [Suspect]
     Active Substance: PACLITAXEL
     Dosage: 147.76 MILLIGRAM, QW
     Route: 042
     Dates: start: 20180522, end: 20180529
  19. ABRAXANE [Suspect]
     Active Substance: PACLITAXEL
     Dosage: 172.67 MILLIGRAM, QW
     Route: 042
     Dates: start: 20180605, end: 20180605
  20. NAVELBINE [Suspect]
     Active Substance: VINORELBINE TARTRATE
     Indication: BREAST CANCER
     Dosage: 50 MILLIGRAM (RECENT DOSE: 28/OCT/2019)
     Route: 048
     Dates: start: 20191001
  21. NERATINIB [Suspect]
     Active Substance: NERATINIB
     Indication: BREAST CANCER
     Dosage: 1440 MILLIGRAM, QD
     Route: 048
     Dates: start: 20200108, end: 20200118
  22. NERATINIB [Suspect]
     Active Substance: NERATINIB
     Indication: HER2 POSITIVE BREAST CANCER
     Dosage: 1440 MILLIGRAM, QD
     Route: 048
     Dates: start: 20200119, end: 20200129
  23. METHOTREXATE (METHOTREXATE SODIUM) [Suspect]
     Active Substance: METHOTREXATE SODIUM
     Dosage: UNK
  24. XGEVA [Concomitant]
     Active Substance: DENOSUMAB
     Indication: PRODUCT USED FOR UNKNOWN INDICATION
     Dosage: UNK
     Dates: start: 20191219, end: 20200410
  25. HYDAL [Concomitant]
     Active Substance: HYDROMORPHONE HYDROCHLORIDE
     Dosage: UNK
     Dates: start: 20200311, end: 20200410
  26. HYDAL [Concomitant]
     Active Substance: HYDROMORPHONE HYDROCHLORIDE
     Dosage: UNK
     Dates: start: 20200228, end: 20200311
  27. TRASTUZUMAB. [Suspect]
     Active Substance: TRASTUZUMAB
     Dosage: 384 MILLIGRAM, Q3W
     Route: 042
     Dates: start: 20180515, end: 20180605
  28. TRASTUZUMAB. [Suspect]
     Active Substance: TRASTUZUMAB
     Dosage: 378 MILLIGRAM, Q3W (MOST RECENT DOSE WAS RECEIVED ON 09/JAN/2019)
     Route: 042
     Dates: start: 20181102, end: 20181123
  29. ABRAXANE [Suspect]
     Active Substance: PACLITAXEL
     Dosage: 170.35 MILLIGRAM, QW
     Route: 042
     Dates: start: 20180626, end: 20180718
  30. ABRAXANE [Suspect]
     Active Substance: PACLITAXEL
     Dosage: 171.51 MILLIGRAM, QW
     Route: 042
     Dates: start: 20190109, end: 20190109
  31. CAPECITABINE. [Suspect]
     Active Substance: CAPECITABINE
     Indication: BREAST CANCER
     Dosage: 500 MILLIGRAM (OTHER )
     Route: 048
     Dates: start: 20191126, end: 20191218
  32. NAVELBINE [Suspect]
     Active Substance: VINORELBINE TARTRATE
     Indication: HER2 POSITIVE BREAST CANCER
     Dosage: 50 MICROGRAM (RECENT DOSE: 28/OCT/2019)
     Route: 048
     Dates: start: 20191011, end: 20191025
  33. TRASTUZUMAB. [Suspect]
     Active Substance: TRASTUZUMAB
     Dosage: 408 MILLIGRAM, Q3W
     Route: 042
     Dates: start: 20180423, end: 20180423
  34. TRASTUZUMAB. [Suspect]
     Active Substance: TRASTUZUMAB
     Dosage: 372 MILLIGRAM, Q3W
     Route: 042
     Dates: start: 20180626, end: 20181010
  35. ABRAXANE [Suspect]
     Active Substance: PACLITAXEL
     Dosage: 172.67 MILLIGRAM, QW
     Route: 042
     Dates: start: 20190116, end: 20190116
  36. TAXOL [Suspect]
     Active Substance: PACLITAXEL
     Indication: HER2 POSITIVE BREAST CANCER
     Dosage: 147.76 MILLIGRAM (WEEKLY RECENT DOSE ON 09/APR/2018)
     Route: 042
     Dates: start: 20180328, end: 20180409
  37. CYCLOPHOSPHAMIDE. [Suspect]
     Active Substance: CYCLOPHOSPHAMIDE
     Indication: HER2 POSITIVE BREAST CANCER
     Dosage: 2.5 MILLIGRAM 0.5  WEEK
     Route: 048
  38. CYCLOPHOSPHAMIDE. [Suspect]
     Active Substance: CYCLOPHOSPHAMIDE
     Dosage: 50 MILLIGRAM, QD
     Route: 048
     Dates: start: 20200219, end: 20200309
  39. METHOTREXATE (METHOTREXATE SODIUM) [Suspect]
     Active Substance: METHOTREXATE SODIUM
     Indication: HER2 POSITIVE BREAST CANCER
     Dosage: 2.5 MILLIGRAM, BIWEEKLY
     Route: 048
     Dates: start: 20200219, end: 20200309
  40. CAL D VITA [Concomitant]
     Indication: PRODUCT USED FOR UNKNOWN INDICATION
     Dosage: UNK (ONGOING CHECKED)
     Route: 065
     Dates: start: 20190425
  41. PERTUZUMAB. [Suspect]
     Active Substance: PERTUZUMAB
     Indication: HER2 POSITIVE BREAST CANCER
     Dosage: 840 MILLIGRAM, Q3W (MOST RECENT DOSE PRIOR TO THE EVENT: 28/MAR/2018, 14/DEC/2018)
     Route: 042
     Dates: start: 20180328, end: 20180328
  42. ABRAXANE [Suspect]
     Active Substance: PACLITAXEL
     Dosage: 177.17 MILLIGRAM, QW
     Route: 042
     Dates: start: 20180416, end: 20180508
  43. ABRAXANE [Suspect]
     Active Substance: PACLITAXEL
     Dosage: 177.17 MILLIGRAM, QW
     Route: 042
     Dates: start: 20180612, end: 20180612
  44. ABRAXANE [Suspect]
     Active Substance: PACLITAXEL
     Dosage: 171.51 MILLIGRAM, QW
     Route: 042
     Dates: start: 20181102, end: 20181123
  45. BEPANTHEN EYE [Concomitant]
     Active Substance: DEXPANTHENOL\HYALURONATE SODIUM
     Indication: CONJUNCTIVITIS
     Dosage: UNK
     Dates: start: 20180619
  46. PANTOLOC                           /01263201/ [Concomitant]
     Active Substance: PANTOPRAZOLE SODIUM
     Indication: PRODUCT USED FOR UNKNOWN INDICATION
     Dosage: UNK (ONGOING CHECKED)
     Route: 065
     Dates: start: 20191011, end: 20200410
  47. KYTRIL [Concomitant]
     Active Substance: GRANISETRON HYDROCHLORIDE
     Indication: PRODUCT USED FOR UNKNOWN INDICATION
     Dosage: UNK (ONGOING NOT CHECKED)
     Dates: start: 20190628, end: 20190830
  48. TRASTUZUMAB EMTANSINE [Suspect]
     Active Substance: ADO-TRASTUZUMAB EMTANSINE
     Indication: HER2 POSITIVE BREAST CANCER
     Dosage: 230.4 MILLIGRAM, Q3W (MOST RECENT DOSE PRIOR TO THE EVENT: 28/JUN/2019, 17/MAY/2019; 16/JAN/2019)
     Route: 042
     Dates: start: 20190131, end: 20190517
  49. CAPECITABINE. [Suspect]
     Active Substance: CAPECITABINE
     Indication: HER2 POSITIVE BREAST CANCER
     Dosage: 500 MILLIGRAM (OTHER  )
     Route: 048
     Dates: start: 20191219
  50. ENTEROBENE [Concomitant]
     Indication: PRODUCT USED FOR UNKNOWN INDICATION
     Dosage: UNK
     Dates: start: 20200108, end: 20200113
  51. HYDAL [Concomitant]
     Active Substance: HYDROMORPHONE HYDROCHLORIDE
     Indication: PRODUCT USED FOR UNKNOWN INDICATION
     Dosage: UNK
     Dates: start: 20200228, end: 20200410

REACTIONS (11)
  - Intentional product use issue [Unknown]
  - Dyspnoea [Recovered/Resolved]
  - Diarrhoea [Recovered/Resolved]
  - Pain of skin [Recovered/Resolved]
  - Febrile neutropenia [Recovered/Resolved]
  - C-reactive protein increased [Recovered/Resolved]
  - Breast cancer metastatic [Recovering/Resolving]
  - Tumour pain [Recovered/Resolved]
  - Stomatitis [Recovered/Resolved]
  - Off label use [Unknown]
  - Overdose [Unknown]

NARRATIVE: CASE EVENT DATE: 20190920
